FAERS Safety Report 24109293 (Version 1)
Quarter: 2024Q3

REPORT INFORMATION
  Report Type: Spontaneous
  Country: FR (occurrence: FR)
  Receive Date: 20240718
  Receipt Date: 20240718
  Transmission Date: 20241016
  Serious: Yes (Hospitalization, Other)
  Sender: AUROBINDO
  Company Number: FR-AFSSAPS-RN2024000742

PATIENT
  Age: 86 Year
  Sex: Female
  Weight: 91 kg

DRUGS (1)
  1. AMOXICILLIN [Suspect]
     Active Substance: AMOXICILLIN
     Indication: Bursitis
     Dosage: 600 MILLIGRAM, ONCE A DAY
     Route: 042
     Dates: start: 20240615, end: 20240617

REACTIONS (4)
  - Hallucination, visual [Recovered/Resolved]
  - Renal failure [Recovering/Resolving]
  - Crystalluria [Recovering/Resolving]
  - Overdose [Recovering/Resolving]

NARRATIVE: CASE EVENT DATE: 20240610
